FAERS Safety Report 14785640 (Version 2)
Quarter: 2018Q4

REPORT INFORMATION
  Report Type: Spontaneous
  Country: US (occurrence: US)
  Receive Date: 20180420
  Receipt Date: 20181119
  Transmission Date: 20190204
  Serious: Yes (Other)
  Sender: FDA-Public Use
  Company Number: US-PFIZER INC-2018159303

PATIENT
  Age: 48 Year
  Sex: Female

DRUGS (1)
  1. XELJANZ XR [Suspect]
     Active Substance: TOFACITINIB CITRATE
     Indication: PSORIATIC ARTHROPATHY
     Dosage: 11 MG, DAILY
     Dates: start: 20180201

REACTIONS (6)
  - Nodule [Unknown]
  - Psoriasis [Recovering/Resolving]
  - Thyroid cancer [Unknown]
  - Herpes zoster [Recovered/Resolved]
  - Granuloma [Unknown]
  - Inflammation [Unknown]

NARRATIVE: CASE EVENT DATE: 201809
